FAERS Safety Report 7101896-5 (Version None)
Quarter: 2010Q4

REPORT INFORMATION
  Report Type: 
  Country: None (occurrence: None)
  Receive Date: 20101108
  Receipt Date: 20101026
  Transmission Date: 20110411
  Serious: Yes (Other)
  Sender: FDA-Public Use
  Company Number: FKO201000496

PATIENT
  Sex: Male

DRUGS (3)
  1. IRINOTECAN HCL [Suspect]
     Indication: COLORECTAL CANCER METASTATIC
     Dosage: DOSE REPORTED AS XELIRI
  2. XELODA (CAPECITABINE) (CAPECITABINE) [Suspect]
     Dosage: DOSE REPORTED AS XELIRI
  3. LAMOTRIGINE [Suspect]
     Indication: EPILEPSY

REACTIONS (6)
  - CONDITION AGGRAVATED [None]
  - DIARRHOEA [None]
  - DRUG INEFFECTIVE [None]
  - DRUG INTERACTION [None]
  - DRUG LEVEL DECREASED [None]
  - EPILEPSY [None]
